FAERS Safety Report 8301030-X (Version None)
Quarter: 2012Q2

REPORT INFORMATION
  Report Type: 
  Country: None (occurrence: None)
  Receive Date: 20120420
  Receipt Date: 20120416
  Transmission Date: 20120825
  Serious: Yes (Other)
  Sender: FDA-Public Use
  Company Number: IN-SANOFI-AVENTIS-2012SA027158

PATIENT
  Sex: Female

DRUGS (4)
  1. CYCLOPHOSPHAMIDE [Concomitant]
  2. TAXOTERE [Suspect]
     Route: 042
     Dates: end: 20120316
  3. FLUOROURACIL [Concomitant]
  4. EPIRUBICIN [Concomitant]

REACTIONS (2)
  - PAIN IN EXTREMITY [None]
  - MUSCLE HYPERTROPHY [None]
